FAERS Safety Report 8093462-2 (Version None)
Quarter: 2012Q1

REPORT INFORMATION
  Report Type: 
  Country: None (occurrence: None)
  Receive Date: 20120129
  Receipt Date: 20110902
  Transmission Date: 20120608
  Serious: No
  Sender: FDA-Public Use
  Company Number: US-ABBOTT-11P-163-0851187-00

PATIENT
  Sex: Female
  Weight: 106.69 kg

DRUGS (7)
  1. RANITIDINE [Concomitant]
     Indication: GASTROOESOPHAGEAL REFLUX DISEASE
  2. LORCET-HD [Concomitant]
     Indication: PAIN
  3. METHOTREXATE [Concomitant]
     Indication: RHEUMATOID ARTHRITIS
  4. IBUPROFEN [Concomitant]
     Indication: ARTHRALGIA
  5. FOLIC ACID [Concomitant]
     Indication: VITAMIN SUPPLEMENTATION
  6. HUMIRA [Suspect]
     Indication: RHEUMATOID ARTHRITIS
     Route: 058
     Dates: start: 20110601
  7. VICODIN [Concomitant]
     Indication: PAIN

REACTIONS (3)
  - SINUS DISORDER [None]
  - LACRIMATION INCREASED [None]
  - SINUS CONGESTION [None]
